FAERS Safety Report 5755083-3 (Version None)
Quarter: 2008Q2

REPORT INFORMATION
  Report Type: 
  Country: None (occurrence: None)
  Receive Date: 20080528
  Receipt Date: 20080528
  Transmission Date: 20081010
  Serious: Yes (Life-Threatening, Hospitalization)
  Sender: FDA-Public Use
  Company Number: None

PATIENT
  Age: 87 Year
  Sex: Male
  Weight: 95.2554 kg

DRUGS (1)
  1. DIGITEK 0.25 MG MYLAN BERT [Suspect]
     Indication: ATRIAL FIBRILLATION
     Dosage: ONE TABLET DAILY PO  LITTLE OVER A MONTH
     Route: 048
     Dates: start: 20071113, end: 20071219

REACTIONS (9)
  - ASTHENIA [None]
  - BLOOD PRESSURE DECREASED [None]
  - BODY TEMPERATURE DECREASED [None]
  - CARDIAC DISORDER [None]
  - DISORIENTATION [None]
  - DIZZINESS [None]
  - NAUSEA [None]
  - THERAPEUTIC AGENT TOXICITY [None]
  - VOMITING [None]
